FAERS Safety Report 8267237-5 (Version None)
Quarter: 2012Q2

REPORT INFORMATION
  Report Type: 
  Country: None (occurrence: None)
  Receive Date: 20120409
  Receipt Date: 20120405
  Transmission Date: 20120825
  Serious: Yes (Other)
  Sender: FDA-Public Use
  Company Number: US-PFIZER INC-2012086791

PATIENT
  Sex: Female
  Weight: 87.528 kg

DRUGS (4)
  1. CELEBREX [Suspect]
     Indication: ARTHRITIS
     Dosage: 200 MG, 2X/DAY
     Route: 048
  2. MAXZIDE [Concomitant]
     Indication: DIURETIC THERAPY
     Dosage: 75/50 MG, DAILY
  3. ZOLOFT [Suspect]
     Indication: DEPRESSION
     Dosage: 100 MG, 1X/DAY
     Route: 048
  4. NEURONTIN [Suspect]
     Indication: FIBROMYALGIA
     Dosage: 600 MG, 4X/DAY
     Route: 048

REACTIONS (2)
  - PAIN IN EXTREMITY [None]
  - BACK DISORDER [None]
